FAERS Safety Report 9360895 (Version 1)
Quarter: 2013Q2

REPORT INFORMATION
  Report Type: Spontaneous
  Country: US (occurrence: US)
  Receive Date: 20130621
  Receipt Date: 20130621
  Transmission Date: 20140414
  Serious: Yes (Other)
  Sender: FDA-Public Use
  Company Number: US-PFIZER INC-2013183879

PATIENT
  Age: 65 Year
  Sex: Female
  Weight: 56 kg

DRUGS (3)
  1. NICOTROL NASAL SPRAY [Suspect]
     Indication: NICOTINE DEPENDENCE
     Dosage: 1 DF, 4X/DAY
     Route: 045
     Dates: start: 201306
  2. NICORETTE [Suspect]
     Indication: NICOTINE DEPENDENCE
     Dosage: 4 MG, 4X/DAY
     Dates: start: 201210, end: 201306
  3. FLUDROCORTISONE [Concomitant]
     Indication: RHINITIS ALLERGIC
     Dosage: UNK, 1X/DAY

REACTIONS (6)
  - Depression [Unknown]
  - Gastric disorder [Unknown]
  - Fatigue [Unknown]
  - Nasal discomfort [Unknown]
  - Burning sensation [Not Recovered/Not Resolved]
  - Sneezing [Unknown]
